FAERS Safety Report 10832105 (Version 1)
Quarter: 2015Q1

REPORT INFORMATION
  Report Type: Spontaneous
  Country: IT (occurrence: IT)
  Receive Date: 20150219
  Receipt Date: 20150219
  Transmission Date: 20150721
  Serious: Yes (Hospitalization, Other)
  Sender: FDA-Public Use
  Company Number: IT-GLAXOSMITHKLINE-IT2015GSK022584

PATIENT
  Age: 40 Year
  Sex: Female

DRUGS (4)
  1. LAMIVUDINE. [Suspect]
     Active Substance: LAMIVUDINE
     Indication: HIV INFECTION
  2. ATAZANAVIR [Suspect]
     Active Substance: ATAZANAVIR
     Indication: HIV INFECTION
  3. RITONAVIR. [Suspect]
     Active Substance: RITONAVIR
     Indication: HIV INFECTION
  4. TENOFOVIR [Suspect]
     Active Substance: TENOFOVIR
     Indication: HIV INFECTION

REACTIONS (8)
  - Pyrexia [Unknown]
  - Diarrhoea [Unknown]
  - Osteolysis [Recovered/Resolved]
  - Weight decreased [Unknown]
  - Tremor [Unknown]
  - Rash [Unknown]
  - Hyperpyrexia [Unknown]
  - Arthralgia [Unknown]
